FAERS Safety Report 16718350 (Version 2)
Quarter: 2019Q3

REPORT INFORMATION
  Report Type: Report from Study
  Country: None (occurrence: US)
  Receive Date: 20190820
  Receipt Date: 20190828
  Transmission Date: 20191005
  Serious: Yes (Other)
  Sender: FDA-Public Use
  Company Number: US-ABBVIE-19K-163-2884283-00

PATIENT
  Sex: Female
  Weight: 108.96 kg

DRUGS (4)
  1. PLAQUENIL [Concomitant]
     Active Substance: HYDROXYCHLOROQUINE SULFATE
     Indication: SJOGREN^S SYNDROME
  2. HUMIRA [Suspect]
     Active Substance: ADALIMUMAB
     Route: 058
     Dates: end: 201901
  3. HUMIRA [Suspect]
     Active Substance: ADALIMUMAB
     Indication: SJOGREN^S SYNDROME
     Dosage: STOP DATE
     Route: 058
     Dates: start: 201803
  4. HUMIRA [Suspect]
     Active Substance: ADALIMUMAB
     Indication: SJOGREN^S SYNDROME
     Route: 058
     Dates: start: 201901

REACTIONS (7)
  - Injection site pain [Recovered/Resolved]
  - Menstruation irregular [Recovered/Resolved]
  - Joint swelling [Not Recovered/Not Resolved]
  - Menorrhagia [Recovered/Resolved]
  - Off label use [Unknown]
  - Ovarian cyst [Recovered/Resolved]
  - Arthralgia [Not Recovered/Not Resolved]

NARRATIVE: CASE EVENT DATE: 2018
